FAERS Safety Report 5036538-6 (Version None)
Quarter: 2006Q2

REPORT INFORMATION
  Report Type: 
  Country: None (occurrence: None)
  Receive Date: 20060626
  Receipt Date: 20060607
  Transmission Date: 20061013
  Serious: Yes (Life-Threatening)
  Sender: FDA-Public Use
  Company Number: GXKR2006AU03204

PATIENT
  Age: 39 Year
  Sex: Female

DRUGS (3)
  1. AMISULPRIDE [Suspect]
     Dosage: 24 G, UNK, ORAL
     Route: 048
  2. DIAZEPAM [Suspect]
     Dosage: ORAL
     Route: 048
  3. NITRAZEPAM (NGX)(NITRAZEPAM) UNKNOWN [Suspect]
     Dosage: ORAL
     Route: 048

REACTIONS (7)
  - BUNDLE BRANCH BLOCK [None]
  - DEPRESSED LEVEL OF CONSCIOUSNESS [None]
  - ELECTROCARDIOGRAM QRS COMPLEX PROLONGED [None]
  - ELECTROCARDIOGRAM QT PROLONGED [None]
  - HYPOTENSION [None]
  - MULTIPLE DRUG OVERDOSE INTENTIONAL [None]
  - TACHYCARDIA [None]
